APPROVED DRUG PRODUCT: WEGOVY
Active Ingredient: SEMAGLUTIDE
Strength: 0.25MG/0.5ML (0.25MG/0.5ML)
Dosage Form/Route: SOLUTION;SUBCUTANEOUS
Application: N215256 | Product #001
Applicant: NOVO NORDISK INC
Approved: Jun 4, 2021 | RLD: Yes | RS: Yes | Type: RX

PATENTS:
Patent 11478533 | Expires: May 13, 2040
Patent 12214017 | Expires: Aug 24, 2038
Patent 11318191 | Expires: Feb 17, 2041
Patent 11752198 | Expires: Aug 24, 2038
Patent 10888605 | Expires: Aug 24, 2038
Patent 9764003 | Expires: Jun 21, 2033
Patent 8536122 | Expires: Mar 20, 2026
Patent 8129343 | Expires: Dec 5, 2031

EXCLUSIVITY:
Code: I-935 | Date: Mar 8, 2027
Code: I-973 | Date: Aug 15, 2028